FAERS Safety Report 15635523 (Version 2)
Quarter: 2019Q1

REPORT INFORMATION
  Report Type: Spontaneous
  Country: FR (occurrence: FR)
  Receive Date: 20181120
  Receipt Date: 20190131
  Transmission Date: 20190417
  Serious: Yes (Other)
  Sender: FDA-Public Use
  Company Number: FR-TEVA-2018-FR-976255

PATIENT
  Age: 50 Year
  Sex: Female

DRUGS (3)
  1. LEVOTHYROX [Concomitant]
     Active Substance: LEVOTHYROXINE
     Route: 065
  2. ESTREVA (ESTRADIOL THERAMEX) [Suspect]
     Active Substance: ESTRADIOL
     Route: 065
  3. ANDROCUR [Suspect]
     Active Substance: CYPROTERONE ACETATE
     Indication: ENDOMETRIOSIS
     Route: 048
     Dates: end: 201809

REACTIONS (1)
  - Meningioma [Recovering/Resolving]

NARRATIVE: CASE EVENT DATE: 20170826
